FAERS Safety Report 24650040 (Version 1)
Quarter: 2024Q4

REPORT INFORMATION
  Report Type: Spontaneous
  Country: DE (occurrence: DE)
  Receive Date: 20241122
  Receipt Date: 20241122
  Transmission Date: 20250115
  Serious: Yes (Hospitalization, Other)
  Sender: ALEXION PHARMACEUTICALS
  Company Number: DE-AstraZeneca-CH-00750856A

PATIENT

DRUGS (4)
  1. DURVALUMAB [Suspect]
     Active Substance: DURVALUMAB
     Indication: Product used for unknown indication
     Dosage: 1 UNK
  2. DURVALUMAB [Suspect]
     Active Substance: DURVALUMAB
     Dosage: 1 UNK
  3. DURVALUMAB [Suspect]
     Active Substance: DURVALUMAB
     Dosage: 1 UNK
  4. DURVALUMAB [Suspect]
     Active Substance: DURVALUMAB
     Dosage: 1 UNK

REACTIONS (2)
  - Toxic epidermal necrolysis [Unknown]
  - Off label use [Unknown]
